FAERS Safety Report 10044101 (Version 2)
Quarter: 2014Q1

REPORT INFORMATION
  Report Type: Spontaneous
  Country: US (occurrence: US)
  Receive Date: 20140328
  Receipt Date: 20140328
  Transmission Date: 20141002
  Serious: No
  Sender: FDA-Public Use
  Company Number: US-MYLANLABS-2014S1000933

PATIENT
  Age: 84 Year
  Sex: Male
  Weight: 95.26 kg

DRUGS (10)
  1. EMSAM (SELEGILINE TRANSDERMAL SYSTEM) [Suspect]
     Indication: DEPRESSION
     Dosage: CHANGES QD
     Route: 062
     Dates: start: 201311, end: 201312
  2. CRESTOR [Concomitant]
     Route: 048
  3. DICYCLOMINE [Concomitant]
     Dosage: TAKES 2 TABLETS PO QD
     Route: 048
  4. JANUVIA [Concomitant]
     Route: 048
  5. LYRICA [Concomitant]
     Route: 048
  6. CINNAMON /01647501/ [Concomitant]
  7. ALPRAZOLAM [Concomitant]
     Indication: ANXIETY
     Route: 048
  8. MULTIVITAMIN [Concomitant]
  9. VITAMIN B12 [Concomitant]
  10. METFORMIN [Concomitant]
     Route: 048

REACTIONS (2)
  - Drug ineffective [Recovered/Resolved]
  - Depression [Recovered/Resolved]
